FAERS Safety Report 20107530 (Version 1)
Quarter: 2021Q4

REPORT INFORMATION
  Report Type: Spontaneous
  Country: US (occurrence: None)
  Receive Date: 20211123
  Receipt Date: 20211123
  Transmission Date: 20220303
  Serious: No
  Sender: FDA-Public Use
  Company Number: None

PATIENT
  Age: 52 Year
  Sex: Male
  Weight: 95.85 kg

DRUGS (24)
  1. QULIPTA [Suspect]
     Active Substance: ATOGEPANT
     Indication: Migraine
     Dosage: OTHER QUANTITY : 1 TABLET(S);?FREQUENCY : AT BEDTIME;?
     Route: 048
     Dates: start: 20211105, end: 20211119
  2. LIFESTYLE LIBRE [Concomitant]
  3. BOTOX [Concomitant]
     Active Substance: ONABOTULINUMTOXINA
  4. FENOFIBRATE [Concomitant]
     Active Substance: FENOFIBRATE
  5. LISINOPRIL [Concomitant]
     Active Substance: LISINOPRIL
  6. LISINOPRIL [Concomitant]
     Active Substance: LISINOPRIL
  7. DOXEPIN [Concomitant]
     Active Substance: DOXEPIN
  8. PROPRANOLOL [Concomitant]
     Active Substance: PROPRANOLOL HYDROCHLORIDE
  9. METFORMIN [Suspect]
     Active Substance: METFORMIN HYDROCHLORIDE
  10. OMEGA-3-ACID ETHYL ESTERS [Concomitant]
     Active Substance: OMEGA-3-ACID ETHYL ESTERS
  11. JARDIANCE [Concomitant]
     Active Substance: EMPAGLIFLOZIN
  12. HYDROCHLOROTHIAZIDE [Concomitant]
     Active Substance: HYDROCHLOROTHIAZIDE
  13. DESVENLAFAXINE [Concomitant]
     Active Substance: DESVENLAFAXINE
  14. CAMBIA [Concomitant]
     Active Substance: DICLOFENAC POTASSIUM
  15. CYCLOBENZAPRINE [Concomitant]
     Active Substance: CYCLOBENZAPRINE
  16. ONDANSETRON [Concomitant]
     Active Substance: ONDANSETRON
  17. UBRELVY [Concomitant]
     Active Substance: UBROGEPANT
  18. IBUPROFEN [Concomitant]
     Active Substance: IBUPROFEN
  19. PEPTOBISMIL [Concomitant]
  20. OSTEO BIFLEX + TUMERIC [Concomitant]
  21. VITAMIN D3 [Concomitant]
     Active Substance: CHOLECALCIFEROL
  22. LEVOMEFOLATE CALCIUM [Concomitant]
     Active Substance: LEVOMEFOLATE CALCIUM
  23. MELATONIN [Concomitant]
     Active Substance: MELATONIN
  24. COMPLETE MULTIVITAMINS MEN 50+ [Concomitant]

REACTIONS (2)
  - Depression [None]
  - Nightmare [None]

NARRATIVE: CASE EVENT DATE: 20211105
